FAERS Safety Report 7096603-9 (Version None)
Quarter: 2010Q4

REPORT INFORMATION
  Report Type: 
  Country: None (occurrence: None)
  Receive Date: 20101110
  Receipt Date: 20101110
  Transmission Date: 20110411
  Serious: Yes (Other)
  Sender: FDA-Public Use
  Company Number: None

PATIENT
  Age: 35 Year
  Sex: Female
  Weight: 65 kg

DRUGS (1)
  1. CYMBALTA [Suspect]
     Indication: MAJOR DEPRESSION
     Dosage: 60MG OD PO
     Route: 048
     Dates: start: 20100401, end: 20101104

REACTIONS (5)
  - AGGRESSION [None]
  - CRYING [None]
  - DIZZINESS [None]
  - IRRITABILITY [None]
  - VERTIGO [None]
